FAERS Safety Report 4482023-X (Version None)
Quarter: 2004Q4

REPORT INFORMATION
  Report Type: 
  Country: None (occurrence: None)
  Receive Date: 20041020
  Receipt Date: 20041020
  Transmission Date: 20050328
  Serious: No
  Sender: FDA-Public Use
  Company Number: None

PATIENT
  Sex: Female

DRUGS (6)
  1. METOCLOPRAMIDE [Suspect]
     Indication: NAUSEA
     Dosage: 10MG X1 INTRAVENOUS
     Route: 042
     Dates: start: 20041001, end: 20041001
  2. METOCLOPRAMIDE [Suspect]
     Indication: VOMITING
     Dosage: 10MG X1 INTRAVENOUS
     Route: 042
     Dates: start: 20041001, end: 20041001
  3. HYDROMORPHONE 2MG/ML AMPS BAXTER [Suspect]
     Indication: PAIN
     Dosage: 1-2MG   X1 INTRAVENOUS
     Route: 042
     Dates: start: 20041001, end: 20041001
  4. HEPLOCK IV [Concomitant]
  5. TORADOL [Concomitant]
  6. ATIVAN [Concomitant]

REACTIONS (1)
  - CONVULSION [None]
